FAERS Safety Report 21778009 (Version 3)
Quarter: 2023Q1

REPORT INFORMATION
  Report Type: Spontaneous
  Country: US (occurrence: US)
  Receive Date: 20221226
  Receipt Date: 20230303
  Transmission Date: 20230417
  Serious: No
  Sender: FDA-Public Use
  Company Number: US-BRISTOL-MYERS SQUIBB COMPANY-2022-158391

PATIENT
  Age: 60 Year
  Sex: Male
  Weight: 106.59 kg

DRUGS (1)
  1. REVLIMID [Suspect]
     Active Substance: LENALIDOMIDE
     Indication: Product used for unknown indication
     Dosage: FREQUENCY- 21 DAYS ON 7 DAYS OFF.
     Route: 048

REACTIONS (3)
  - Pruritus [Unknown]
  - Rash macular [Unknown]
  - Rash [Unknown]
